FAERS Safety Report 8367419-8 (Version None)
Quarter: 2012Q2

REPORT INFORMATION
  Report Type: 
  Country: None (occurrence: None)
  Receive Date: 20120517
  Receipt Date: 20120514
  Transmission Date: 20120825
  Serious: Yes (Disabling)
  Sender: FDA-Public Use
  Company Number: GB-MERCK-1203GBR00039

PATIENT
  Sex: Female

DRUGS (20)
  1. AMITRIPTYLINE HYDROCHLORIDE [Concomitant]
     Route: 065
     Dates: start: 20020101
  2. ATENOLOL [Concomitant]
     Route: 065
     Dates: start: 20020101
  3. ATENOLOL [Concomitant]
     Route: 065
     Dates: start: 20060101
  4. ZOCOR [Suspect]
     Route: 048
     Dates: start: 20070101, end: 20110701
  5. IBUPROFEN [Concomitant]
     Indication: MUSCLE SPASMS
     Route: 065
     Dates: start: 20020101, end: 20020301
  6. LISINOPRIL [Concomitant]
     Route: 048
     Dates: start: 20020101
  7. ZOCOR [Suspect]
     Route: 048
     Dates: start: 20020501, end: 20070101
  8. AMLODIPINE [Concomitant]
     Route: 065
     Dates: start: 20060101
  9. VALSARTAN [Concomitant]
     Route: 065
  10. ATENOLOL [Concomitant]
     Route: 065
  11. ATENOLOL [Concomitant]
     Route: 065
     Dates: start: 20030101
  12. DILTIAZEM HYDROCHLORIDE [Concomitant]
     Route: 065
     Dates: start: 20020101
  13. OLMESARTAN MEDOXOMIL [Concomitant]
     Indication: HYPERTENSION
     Route: 065
     Dates: start: 20060101, end: 20120401
  14. BENDROFLUMETHIAZIDE [Concomitant]
     Route: 065
     Dates: start: 20020101
  15. LEVETIRACETAM [Concomitant]
     Route: 065
     Dates: start: 20060101
  16. FLUOXETINE [Concomitant]
     Route: 065
     Dates: start: 20020101
  17. CLONAZEPAM [Concomitant]
     Indication: MUSCLE SPASMS
     Route: 065
     Dates: start: 20020101, end: 20060101
  18. OLMESARTAN MEDOXOMIL [Concomitant]
     Route: 065
     Dates: start: 20120401
  19. LEVETIRACETAM [Concomitant]
     Route: 065
     Dates: start: 20110101
  20. PAROXETINE [Concomitant]
     Route: 065
     Dates: start: 20031201

REACTIONS (33)
  - MUSCULAR WEAKNESS [None]
  - PERFORMANCE STATUS DECREASED [None]
  - PIGMENTATION DISORDER [None]
  - DYSPNOEA [None]
  - ABASIA [None]
  - MUSCLE ATROPHY [None]
  - BREATH SOUNDS ABNORMAL [None]
  - ARTHRALGIA [None]
  - DYSKINESIA [None]
  - BACK PAIN [None]
  - NECK PAIN [None]
  - DYSPHAGIA [None]
  - TINNITUS [None]
  - CHEST DISCOMFORT [None]
  - MUSCULOSKELETAL PAIN [None]
  - CARDIOMEGALY [None]
  - DISTURBANCE IN ATTENTION [None]
  - PALPITATIONS [None]
  - PAIN IN EXTREMITY [None]
  - LIVER TENDERNESS [None]
  - JOINT SWELLING [None]
  - OEDEMA PERIPHERAL [None]
  - PYREXIA [None]
  - PARAESTHESIA [None]
  - MUSCLE SPASMS [None]
  - CARDIAC DISORDER [None]
  - DRY MOUTH [None]
  - CHEST PAIN [None]
  - FINGER DEFORMITY [None]
  - PAIN [None]
  - MYALGIA [None]
  - TACHYCARDIA [None]
  - FAECES PALE [None]
